FAERS Safety Report 5930631-9 (Version None)
Quarter: 2008Q4

REPORT INFORMATION
  Report Type: 
  Country: None (occurrence: None)
  Receive Date: 20081027
  Receipt Date: 20081021
  Transmission Date: 20090506
  Serious: Yes (Death, Life-Threatening, Hospitalization)
  Sender: FDA-Public Use
  Company Number: JP-JNJFOC-20080305566

PATIENT
  Sex: Male
  Weight: 43 kg

DRUGS (66)
  1. FENTANYL CITRATE [Suspect]
     Route: 062
  2. FENTANYL CITRATE [Suspect]
     Route: 062
  3. FENTANYL CITRATE [Suspect]
     Indication: PAIN
     Route: 062
  4. FENTANYL CITRATE [Suspect]
     Indication: CANCER PAIN
     Route: 062
  5. ELASPOL [Concomitant]
     Indication: PNEUMONIA
     Route: 042
  6. ELASPOL [Concomitant]
     Indication: PNEUMONIA ASPIRATION
     Route: 042
  7. FULCALIQ 1 [Concomitant]
     Indication: NUTRITIONAL SUPPORT
     Route: 042
  8. LOXONIN [Concomitant]
     Route: 048
  9. LOXONIN [Concomitant]
     Indication: CANCER PAIN
     Route: 048
  10. EURODIN [Concomitant]
     Indication: INSOMNIA
     Route: 048
  11. BROCIN [Concomitant]
     Indication: COUGH
     Route: 048
  12. ALLOID G [Concomitant]
     Indication: GASTRITIS
     Route: 048
  13. VOLTAREN [Concomitant]
     Indication: PNEUMONIA ASPIRATION
     Route: 054
  14. VOLTAREN [Concomitant]
     Indication: PNEUMONIA
     Route: 054
  15. VOLTAREN [Concomitant]
     Indication: CANCER PAIN
     Route: 054
  16. FENTANYL CITRATE [Concomitant]
     Indication: CANCER PAIN
     Route: 062
  17. ROPION [Concomitant]
     Route: 042
  18. ROPION [Concomitant]
     Route: 042
  19. ROPION [Concomitant]
     Indication: CANCER PAIN
     Dosage: 50MG 5ML
     Route: 042
  20. VEEN-D [Concomitant]
     Indication: NUTRITIONAL SUPPORT
     Route: 042
  21. SULBACILLIN [Concomitant]
     Route: 041
  22. SULBACILLIN [Concomitant]
     Route: 041
  23. SULBACILLIN [Concomitant]
     Indication: PNEUMONIA
     Route: 041
  24. ISOTONIC SODIUM CHLORIDE SOLUTION [Concomitant]
     Indication: PNEUMONIA
     Route: 042
  25. PREDONINE [Concomitant]
     Indication: PNEUMONIA ASPIRATION
     Route: 048
  26. MIDAZOLAM HCL [Concomitant]
     Route: 042
  27. MIDAZOLAM HCL [Concomitant]
     Route: 042
  28. MIDAZOLAM HCL [Concomitant]
     Indication: SEDATION
     Route: 042
  29. GASTER D [Concomitant]
     Indication: GASTRITIS
     Route: 048
  30. ENSURE LIQUID [Concomitant]
     Indication: NUTRITIONAL SUPPORT
     Route: 048
  31. MEROPEN [Concomitant]
     Route: 041
  32. MEROPEN [Concomitant]
     Indication: PNEUMONIA
     Route: 041
  33. MEROPEN [Concomitant]
     Indication: PNEUMONIA ASPIRATION
     Route: 041
  34. ALBUMINATE [Concomitant]
     Indication: BLOOD ALBUMIN DECREASED
     Route: 042
  35. INTRAFAT [Concomitant]
     Indication: NUTRITIONAL SUPPORT
     Route: 042
  36. RHYTHMY [Concomitant]
     Indication: INSOMNIA
     Route: 048
  37. RACOL [Concomitant]
     Indication: NUTRITIONAL SUPPORT
     Route: 048
  38. PURSENNID [Concomitant]
     Indication: CONSTIPATION
     Route: 048
  39. TELEMINSOFT [Concomitant]
     Indication: CONSTIPATION
     Route: 054
  40. LAXOBERON [Concomitant]
     Indication: CONSTIPATION
     Route: 048
  41. PHYSIO 35 [Concomitant]
     Indication: NUTRITIONAL SUPPORT
     Route: 042
  42. VITAMEDIN [Concomitant]
     Indication: NUTRITIONAL SUPPORT
     Route: 042
  43. BISOLVON [Concomitant]
     Indication: PRODUCTIVE COUGH
     Route: 042
  44. FAMOTIDINE [Concomitant]
     Route: 042
  45. FAMOTIDINE [Concomitant]
     Indication: GASTRITIS
     Route: 042
  46. MAXIPIME [Concomitant]
     Indication: PNEUMONIA ASPIRATION
     Route: 042
  47. PREDOPA [Concomitant]
     Indication: PNEUMONIA ASPIRATION
     Route: 042
  48. SODIUM GUALENATE [Concomitant]
     Indication: COUGH
     Route: 049
  49. FOY [Concomitant]
     Indication: PNEUMONIA ASPIRATION
     Route: 042
  50. BISOLVON [Concomitant]
     Indication: PNEUMONIA ASPIRATION
     Route: 055
  51. VENETLIN [Concomitant]
     Indication: PNEUMONIA ASPIRATION
     Route: 055
  52. SOLDEM 3AG [Concomitant]
     Indication: NUTRITIONAL SUPPORT
     Route: 042
  53. SOL-MELCORT [Concomitant]
     Indication: PNEUMONIA ASPIRATION
     Route: 042
  54. LASIX [Concomitant]
     Route: 042
  55. LASIX [Concomitant]
     Indication: DYSURIA
     Route: 042
  56. BICARBON [Concomitant]
     Indication: NUTRITIONAL SUPPORT
     Route: 042
  57. GLUCOSE [Concomitant]
     Route: 042
  58. GLUCOSE [Concomitant]
     Indication: NUTRITIONAL SUPPORT
     Route: 042
  59. GLUCOSE [Concomitant]
     Indication: MEDICATION DILUTION
     Route: 042
  60. PRIMPERAN [Concomitant]
     Route: 042
  61. DIGOSIN [Concomitant]
     Indication: NUTRITIONAL SUPPORT
     Route: 042
  62. FULCALIQ 2 [Concomitant]
     Indication: NUTRITIONAL SUPPORT
     Route: 042
  63. FULCALIQ 3 [Concomitant]
     Indication: NUTRITIONAL SUPPORT
     Route: 042
  64. LOXONIN [Concomitant]
     Route: 048
  65. OXYGEN [Concomitant]
     Indication: PNEUMONIA ASPIRATION
     Route: 055
  66. XYLOCAINE [Concomitant]
     Indication: COUGH
     Route: 048

REACTIONS (2)
  - DISSEMINATED INTRAVASCULAR COAGULATION [None]
  - PNEUMONIA ASPIRATION [None]
